FAERS Safety Report 9849246 (Version 1)
Quarter: 2014Q1

REPORT INFORMATION
  Report Type: Report from Study
  Country: US (occurrence: US)
  Receive Date: 20140128
  Receipt Date: 20140128
  Transmission Date: 20141002
  Serious: Yes (Hospitalization, Other)
  Sender: FDA-Public Use
  Company Number: US-PURDUE-USA-2014-0110540

PATIENT
  Age: 57 Year
  Sex: Female

DRUGS (3)
  1. DILAUDID TABLET [Suspect]
     Indication: PRODUCT USED FOR UNKNOWN INDICATION
     Dosage: UNKNOWN
  2. COPAXONE [Suspect]
     Indication: MULTIPLE SCLEROSIS
     Dosage: UNK
     Dates: start: 20131117
  3. VALIUM /00017001/ [Suspect]
     Indication: PRODUCT USED FOR UNKNOWN INDICATION
     Dosage: UNKNOWN

REACTIONS (5)
  - Accidental overdose [Unknown]
  - Cardiac arrest [Unknown]
  - Loss of consciousness [Unknown]
  - Fall [Unknown]
  - Upper limb fracture [Unknown]
